FAERS Safety Report 5273867-5 (Version None)
Quarter: 2007Q1

REPORT INFORMATION
  Report Type: 
  Country: None (occurrence: None)
  Receive Date: 20070323
  Receipt Date: 20070313
  Transmission Date: 20070707
  Serious: Yes (Other)
  Sender: FDA-Public Use
  Company Number: CH-ROCHE-487429

PATIENT
  Age: 65 Year
  Sex: Female

DRUGS (2)
  1. XENICAL [Suspect]
     Indication: DRUG USE FOR UNKNOWN INDICATION
     Route: 048
     Dates: start: 20060515, end: 20061115
  2. BETA-BLOCKER [Concomitant]

REACTIONS (1)
  - IRON DEFICIENCY ANAEMIA [None]
